FAERS Safety Report 5918723-1 (Version None)
Quarter: 2008Q4

REPORT INFORMATION
  Report Type: 
  Country: None (occurrence: None)
  Receive Date: 20081015
  Receipt Date: 20080630
  Transmission Date: 20090506
  Serious: No
  Sender: FDA-Public Use
  Company Number: US-ASTRAZENECA-2008UW13130

PATIENT
  Age: 83 Year
  Sex: Female
  Weight: 63.5 kg

DRUGS (12)
  1. SYMBICORT [Suspect]
     Indication: DYSPNOEA
     Route: 055
     Dates: start: 20070101
  2. ENALAPRIL MALEATE [Concomitant]
  3. METFORMIN [Concomitant]
  4. OMEPRAZOLE [Concomitant]
  5. GLYBURIDE [Concomitant]
  6. THEOPHYLLINE [Concomitant]
  7. SINGULAIR [Concomitant]
  8. TRAZODONE HCL [Concomitant]
  9. FOSAMAX [Concomitant]
  10. PREMARIN CREAM [Concomitant]
  11. FLOVENT [Concomitant]
  12. ALBUTEROL [Concomitant]

REACTIONS (1)
  - ALOPECIA [None]
